FAERS Safety Report 13486783 (Version 1)
Quarter: 2017Q2

REPORT INFORMATION
  Report Type: Report from Study
  Country: US (occurrence: US)
  Receive Date: 20170426
  Receipt Date: 20170426
  Transmission Date: 20170830
  Serious: Yes (Other)
  Sender: FDA-Public Use
  Company Number: US-GILEAD-2017-0269252

PATIENT
  Age: 73 Year
  Sex: Male

DRUGS (1)
  1. RANOLAZINE. [Suspect]
     Active Substance: RANOLAZINE
     Indication: ANGINA PECTORIS
     Dosage: 1000 MG, UNK
     Route: 048

REACTIONS (7)
  - Hip surgery [Recovered/Resolved]
  - Nerve injury [Unknown]
  - Sensory loss [Unknown]
  - Dyspnoea [Unknown]
  - Chest pain [Unknown]
  - Stent placement [Recovered/Resolved]
  - Swelling [Unknown]
